FAERS Safety Report 12761512 (Version 1)
Quarter: 2016Q3

REPORT INFORMATION
  Report Type: Spontaneous
  Country: US (occurrence: US)
  Receive Date: 20160920
  Receipt Date: 20160920
  Transmission Date: 20161109
  Serious: No
  Sender: FDA-Public Use
  Company Number: PHHY2016US129256

PATIENT
  Age: 19 Year
  Sex: Female

DRUGS (1)
  1. CAMBIA [Suspect]
     Active Substance: DICLOFENAC POTASSIUM
     Indication: PRODUCT USED FOR UNKNOWN INDICATION
     Dosage: 50 MG, ONE PACKET WITH 1 TO 2 OUNCES OF WATER
     Route: 048
     Dates: start: 20160519

REACTIONS (1)
  - Aura [Recovering/Resolving]

NARRATIVE: CASE EVENT DATE: 2016
